FAERS Safety Report 17162128 (Version 1)
Quarter: 2019Q4

REPORT INFORMATION
  Report Type: Spontaneous
  Country: US (occurrence: US)
  Receive Date: 20191122
  Receipt Date: 20191122
  Transmission Date: 20200122
  Serious: Yes (Death)
  Sender: FDA-Public Use
  Company Number: None

PATIENT
  Age: 64 Year
  Sex: Female

DRUGS (15)
  1. OPSUMIT [Suspect]
     Active Substance: MACITENTAN
     Indication: PULMONARY HYPERTENSION
     Route: 048
     Dates: start: 201908, end: 201911
  2. TREPROSTINIL. [Concomitant]
     Active Substance: TREPROSTINIL
  3. TIZANIDINE. [Concomitant]
     Active Substance: TIZANIDINE
  4. CLONZEPAM [Concomitant]
     Active Substance: CLONAZEPAM
  5. LEVOTHYROXINE. [Concomitant]
     Active Substance: LEVOTHYROXINE
  6. TADALAFIL. [Concomitant]
     Active Substance: TADALAFIL
  7. LURASIDONE [Concomitant]
     Active Substance: LURASIDONE
  8. LAMOTRIGINE. [Concomitant]
     Active Substance: LAMOTRIGINE
  9. CLANZAPINE [Concomitant]
  10. METHYLPHENIDATE. [Concomitant]
     Active Substance: METHYLPHENIDATE
  11. BUPROPION. [Concomitant]
     Active Substance: BUPROPION
  12. TORSEMIDE. [Concomitant]
     Active Substance: TORSEMIDE
  13. SPIRONOLACT [Concomitant]
     Active Substance: SPIRONOLACTONE
  14. MYCOPHENOLATE [Concomitant]
     Active Substance: MYCOPHENOLIC ACID
  15. TRAMADOL. [Concomitant]
     Active Substance: TRAMADOL

REACTIONS (4)
  - Headache [None]
  - Central nervous system infection [None]
  - Fall [None]
  - Cerebrovascular accident [None]

NARRATIVE: CASE EVENT DATE: 20191001
